FAERS Safety Report 7688645-7 (Version None)
Quarter: 2011Q3

REPORT INFORMATION
  Report Type: 
  Country: None (occurrence: None)
  Receive Date: 20110817
  Receipt Date: 20110721
  Transmission Date: 20111222
  Serious: Yes (Other)
  Sender: FDA-Public Use
  Company Number: JP-JNJFOC-20110607028

PATIENT
  Age: 84 Year
  Sex: Male

DRUGS (3)
  1. ZYRTEC [Suspect]
     Route: 048
  2. ZYRTEC [Suspect]
     Indication: PRURITUS
     Route: 048
     Dates: end: 20110501
  3. PROSULTIAMINE [Concomitant]
     Indication: PRODUCT USED FOR UNKNOWN INDICATION

REACTIONS (1)
  - EPILEPSY [None]
